FAERS Safety Report 5474195-5 (Version None)
Quarter: 2007Q3

REPORT INFORMATION
  Report Type: 
  Country: None (occurrence: None)
  Receive Date: 20070928
  Receipt Date: 20070905
  Transmission Date: 20080115
  Serious: Yes (Other)
  Sender: FDA-Public Use
  Company Number: CHPA2007US09500

PATIENT
  Age: 41 Year
  Sex: Female

DRUGS (3)
  1. BENEFIBER W/WHEAT DEXTRIN (NCH)(WHEAT DEXTRIN0 POWDER [Suspect]
     Dosage: SEE IMAGE
     Route: 048
     Dates: start: 20070801, end: 20070801
  2. BENEFIBER W/WHEAT DEXTRIN (NCH)(WHEAT DEXTRIN0 POWDER [Suspect]
     Dosage: SEE IMAGE
     Route: 048
     Dates: start: 20070801
  3. DRUG THERAPY NOS (DRUG THERAPY NOS) [Concomitant]

REACTIONS (6)
  - BLISTER [None]
  - ERYTHEMA [None]
  - FLATULENCE [None]
  - PRURITUS [None]
  - RASH [None]
  - RASH PAPULAR [None]
